FAERS Safety Report 6345092-8 (Version None)
Quarter: 2009Q3

REPORT INFORMATION
  Report Type: 
  Country: None (occurrence: None)
  Receive Date: 20090909
  Receipt Date: 20071119
  Transmission Date: 20100115
  Serious: Yes (Hospitalization, Other)
  Sender: FDA-Public Use
  Company Number: US-ASTRAZENECA-2006UW27652

PATIENT
  Age: 16331 Day
  Sex: Male
  Weight: 94.3 kg

DRUGS (17)
  1. SEROQUEL [Suspect]
     Indication: DEPRESSION
     Route: 048
     Dates: start: 20010601, end: 20060201
  2. SEROQUEL [Suspect]
     Indication: BIPOLAR DISORDER
     Route: 048
     Dates: start: 20010601, end: 20060201
  3. SEROQUEL [Suspect]
     Dosage: 40 MG - 600 MG
     Route: 048
     Dates: start: 20010623
  4. SEROQUEL [Suspect]
     Dosage: 40 MG - 600 MG
     Route: 048
     Dates: start: 20010623
  5. TRAZODONE [Concomitant]
     Indication: BIPOLAR DISORDER
     Dosage: 50 MG - 400 MG
     Route: 048
     Dates: start: 20040119
  6. XANAX [Concomitant]
     Indication: BIPOLAR DISORDER
     Dosage: 0.75 MG - 2 MG
     Dates: start: 20010814
  7. VISTARIL [Concomitant]
     Indication: BIPOLAR DISORDER
     Dosage: 12.5 MG Q 6H PRN
     Dates: start: 20040119
  8. ATIVAN [Concomitant]
     Indication: AGITATION
     Dates: start: 20050314
  9. ASPIRIN [Concomitant]
     Dates: start: 20060131
  10. REMERON [Concomitant]
     Dosage: 15 MG - 30 MG
     Dates: start: 20010814
  11. ACIPHEX [Concomitant]
     Dates: start: 20010814
  12. CLOMIPRAMINE [Concomitant]
     Dates: start: 20050319
  13. FOSAMAX [Concomitant]
     Dates: start: 20050319
  14. GEODON [Concomitant]
     Dates: start: 20070827
  15. AMBIEN [Concomitant]
     Dates: start: 20060414
  16. DEPAKOTE [Concomitant]
     Dates: start: 20060414
  17. ABILIFY [Concomitant]
     Dates: start: 20060414

REACTIONS (7)
  - CHOLECYSTITIS CHRONIC [None]
  - DIABETES MELLITUS [None]
  - GALLBLADDER DISORDER [None]
  - PANCREATITIS [None]
  - PANCREATITIS ACUTE [None]
  - PANCREATITIS CHRONIC [None]
  - TYPE 2 DIABETES MELLITUS [None]
